FAERS Safety Report 5521516-0 (Version None)
Quarter: 2007Q4

REPORT INFORMATION
  Report Type: 
  Country: None (occurrence: None)
  Receive Date: 20071119
  Receipt Date: 20071119
  Transmission Date: 20080405
  Serious: No
  Sender: FDA-Public Use
  Company Number: None

PATIENT
  Age: 65 Year
  Sex: Female
  Weight: 60.3284 kg

DRUGS (1)
  1. HYDROXCYCHLOROQUINE 200MG [Suspect]
     Indication: RHEUMATOID ARTHRITIS
     Dates: start: 20070507, end: 20071113

REACTIONS (1)
  - ALOPECIA [None]
